FAERS Safety Report 15277825 (Version 1)
Quarter: 2018Q3

REPORT INFORMATION
  Report Type: Spontaneous
  Country: US (occurrence: US)
  Receive Date: 20180730
  Receipt Date: 20180730
  Transmission Date: 20181010
  Serious: Yes (Hospitalization)
  Sender: FDA-Public Use
  Company Number: None

PATIENT
  Age: 67 Year
  Sex: Female

DRUGS (39)
  1. CLONIDINE. [Concomitant]
     Active Substance: CLONIDINE
  2. FERROUS SUF [Concomitant]
  3. A?HYDROCORT [Concomitant]
     Active Substance: HYDROCORTISONE SODIUM SUCCINATE
  4. LANTUS [Concomitant]
     Active Substance: INSULIN GLARGINE
  5. LISINOPRIL. [Concomitant]
     Active Substance: LISINOPRIL
  6. LUMIGAN [Concomitant]
     Active Substance: BIMATOPROST
  7. NIFEDIPINE. [Concomitant]
     Active Substance: NIFEDIPINE
  8. ONE TOUCH [Concomitant]
  9. OYST?CAL [Concomitant]
  10. PRANDIN [Concomitant]
     Active Substance: REPAGLINIDE
  11. ROSUVASTATIN. [Concomitant]
     Active Substance: ROSUVASTATIN
  12. PRAVACHOL [Concomitant]
     Active Substance: PRAVASTATIN SODIUM
  13. PROGRAF [Concomitant]
     Active Substance: TACROLIMUS\TACROLIMUS ANHYDROUS
  14. SERTRALINE [Concomitant]
     Active Substance: SERTRALINE HYDROCHLORIDE
  15. ACYCLOVIR. [Concomitant]
     Active Substance: ACYCLOVIR
  16. AZITHROMYCIN ANHYDROUS. [Concomitant]
     Active Substance: AZITHROMYCIN ANHYDROUS
  17. HUMALOG [Concomitant]
     Active Substance: INSULIN LISPRO
  18. RENVELA [Concomitant]
     Active Substance: SEVELAMER CARBONATE
  19. TACROLIMUS. [Suspect]
     Active Substance: TACROLIMUS
     Indication: LUNG TRANSPLANT
     Dosage: ?          OTHER FREQUENCY:BID WITH 0.5MG;?
     Route: 048
     Dates: start: 20150912
  20. CALCITRIOL. [Concomitant]
     Active Substance: CALCITRIOL
  21. DIPHEN/TROP [Concomitant]
  22. MUCINEX [Concomitant]
     Active Substance: GUAIFENESIN
  23. TYLENOL [Concomitant]
     Active Substance: ACETAMINOPHEN
  24. TACROLIMUS. [Suspect]
     Active Substance: TACROLIMUS
     Indication: LUNG TRANSPLANT
     Dosage: ?          OTHER FREQUENCY:BID WITH 1.0 MG;?
     Route: 048
     Dates: start: 20150912
  25. CARVEDILOL. [Concomitant]
     Active Substance: CARVEDILOL
  26. PREDNISONE. [Concomitant]
     Active Substance: PREDNISONE
  27. RENAL SFTGLS [Concomitant]
  28. ZOLOFT [Concomitant]
     Active Substance: SERTRALINE HYDROCHLORIDE
  29. CRESTOR [Concomitant]
     Active Substance: ROSUVASTATIN CALCIUM
  30. IMIQUIMOD. [Concomitant]
     Active Substance: IMIQUIMOD
  31. METOPROL TAR [Concomitant]
  32. VITAMIN D [Concomitant]
     Active Substance: CHOLECALCIFEROL
  33. BD PEN NEEDL MIS [Concomitant]
  34. CELLCEPT [Concomitant]
     Active Substance: MYCOPHENOLATE MOFETIL\MYCOPHENOLATE MOFETIL HYDROCHLORIDE
  35. LOPERAMIDE [Concomitant]
     Active Substance: LOPERAMIDE
  36. NEPHROCAPS [Concomitant]
     Active Substance: ASCORBIC ACID\BIOTIN\CYANOCOBALAMIN\FOLIC ACID\NIACIN\PANTOTHENIC ACID\PYRIDOXINE\RIBOFLAVIN\THIAMINE
  37. OXYCODONE [Concomitant]
     Active Substance: OXYCODONE
  38. LORATADINE. [Concomitant]
     Active Substance: LORATADINE
  39. SMZ?TMP [Concomitant]
     Active Substance: SULFAMETHOXAZOLE\TRIMETHOPRIM

REACTIONS (1)
  - Sepsis [None]

NARRATIVE: CASE EVENT DATE: 20180713
